FAERS Safety Report 6489071-9 (Version None)
Quarter: 2009Q4

REPORT INFORMATION
  Report Type: 
  Country: None (occurrence: None)
  Receive Date: 20091123
  Receipt Date: 20091008
  Transmission Date: 20100525
  Serious: No
  Sender: FDA-Public Use
  Company Number: 8053116

PATIENT
  Sex: Female
  Weight: 60.7 kg

DRUGS (2)
  1. CIMZIA [Suspect]
     Indication: CROHN'S DISEASE
     Dosage: 400 MG SC
     Route: 058
  2. MERCAPTOPURINE [Suspect]
     Dosage: 50 MG /D PO
     Route: 048

REACTIONS (1)
  - DIARRHOEA HAEMORRHAGIC [None]
